FAERS Safety Report 10163539 (Version 1)
Quarter: 2014Q2

REPORT INFORMATION
  Report Type: Spontaneous
  Country: IE (occurrence: IE)
  Receive Date: 20140509
  Receipt Date: 20140509
  Transmission Date: 20141212
  Serious: Yes (Other)
  Sender: FDA-Public Use
  Company Number: IE-ABBVIE-14P-229-1233218-00

PATIENT
  Age: 24 Year
  Sex: Male

DRUGS (5)
  1. HUMIRA [Suspect]
     Indication: CROHN^S DISEASE
     Dosage: ONLY RECEIVED 2 OF THE 4 INJECTIONS FOR 160 MG
     Route: 058
     Dates: start: 20140430
  2. HUMIRA [Suspect]
     Route: 058
     Dates: start: 20140501
  3. PENTASA [Concomitant]
     Indication: PRODUCT USED FOR UNKNOWN INDICATION
  4. PREDNISOLONE [Concomitant]
     Indication: PRODUCT USED FOR UNKNOWN INDICATION
  5. IMURAN [Concomitant]
     Indication: PRODUCT USED FOR UNKNOWN INDICATION

REACTIONS (7)
  - Asthenia [Recovering/Resolving]
  - Pallor [Recovering/Resolving]
  - Cold sweat [Recovering/Resolving]
  - Mydriasis [Recovering/Resolving]
  - Unresponsive to stimuli [Recovering/Resolving]
  - Presyncope [Recovering/Resolving]
  - Incorrect dose administered [Recovering/Resolving]
